FAERS Safety Report 10200989 (Version 1)
Quarter: 2014Q2

REPORT INFORMATION
  Report Type: Spontaneous
  Country: CA (occurrence: CA)
  Receive Date: 20140528
  Receipt Date: 20140528
  Transmission Date: 20141212
  Serious: Yes (Other)
  Sender: FDA-Public Use
  Company Number: PHHY2014CA064373

PATIENT
  Age: 71 Year
  Sex: Female
  Weight: 77.98 kg

DRUGS (4)
  1. VALSARTAN+HYDROCHLOROTHIAZIDE SANDOZ [Suspect]
     Dosage: 1 DF, QD
     Route: 048
  2. AMITRIPTYLINE [Concomitant]
  3. ELTROXIN [Concomitant]
  4. BISOPROLOL [Concomitant]

REACTIONS (5)
  - Haemoptysis [Recovered/Resolved]
  - Choking [Recovered/Resolved]
  - Dyspnoea [Recovered/Resolved]
  - Palpitations [Recovered/Resolved]
  - Cough [Recovered/Resolved]
